FAERS Safety Report 18582114 (Version 1)
Quarter: 2020Q4

REPORT INFORMATION
  Report Type: Spontaneous
  Country: US (occurrence: US)
  Receive Date: 20201204
  Receipt Date: 20201204
  Transmission Date: 20210114
  Serious: Yes (Other)
  Sender: FDA-Public Use
  Company Number: US-PURDUE PHARMA-USA-2020-0177721

PATIENT

DRUGS (5)
  1. ENDOCET [Suspect]
     Active Substance: ACETAMINOPHEN\OXYCODONE HYDROCHLORIDE
     Indication: PAIN
     Dosage: UNK
     Route: 065
  2. LORTAB [Suspect]
     Active Substance: ACETAMINOPHEN\HYDROCODONE BITARTRATE
     Indication: PAIN
     Dosage: UNK
     Route: 065
  3. SUBOXONE [Suspect]
     Active Substance: BUPRENORPHINE HYDROCHLORIDE\NALOXONE HYDROCHLORIDE
     Indication: PAIN
     Dosage: UNK
     Route: 065
     Dates: end: 2020
  4. OXYCODONE HYDROCHLORIDE (SIMILAR TO NDA 22-272) [Suspect]
     Active Substance: OXYCODONE HYDROCHLORIDE
     Indication: PAIN
     Dosage: 10 MG, TID
     Route: 048
  5. SUBOXONE [Suspect]
     Active Substance: BUPRENORPHINE HYDROCHLORIDE\NALOXONE HYDROCHLORIDE
     Indication: DEPENDENCE

REACTIONS (12)
  - Pain [Unknown]
  - Arthralgia [Unknown]
  - Dependence [Unknown]
  - Fibromyalgia [Unknown]
  - Staphylococcal infection [Unknown]
  - Arthritis [Unknown]
  - Overdose [Unknown]
  - Joint injury [Unknown]
  - Bursitis [Unknown]
  - Knee operation [Unknown]
  - Depression [Unknown]
  - Hip surgery [Unknown]

NARRATIVE: CASE EVENT DATE: 2017
